FAERS Safety Report 17970454 (Version 1)
Quarter: 2020Q3

REPORT INFORMATION
  Report Type: Spontaneous
  Country: FR (occurrence: FR)
  Receive Date: 20200701
  Receipt Date: 20200701
  Transmission Date: 20201103
  Serious: Yes (Other)
  Sender: FDA-Public Use
  Company Number: FR-PFIZER INC-2020251195

PATIENT
  Age: 37 Year
  Sex: Female
  Weight: 78 kg

DRUGS (1)
  1. SOLU?MEDROL [Suspect]
     Active Substance: METHYLPREDNISOLONE SODIUM SUCCINATE
     Indication: OPTIC NEURITIS
     Dosage: 1 DF
     Route: 042
     Dates: start: 20200602, end: 20200605

REACTIONS (9)
  - Pain in jaw [Recovering/Resolving]
  - Rash [Recovering/Resolving]
  - Arthralgia [Recovering/Resolving]
  - Insomnia [Recovering/Resolving]
  - Paraesthesia [Recovering/Resolving]
  - Neck pain [Recovering/Resolving]
  - Headache [Recovering/Resolving]
  - Dyspnoea [Recovering/Resolving]
  - Vision blurred [Recovering/Resolving]

NARRATIVE: CASE EVENT DATE: 20200602
